FAERS Safety Report 25445155 (Version 1)
Quarter: 2025Q2

REPORT INFORMATION
  Report Type: Spontaneous
  Country: US (occurrence: None)
  Receive Date: 20250616
  Receipt Date: 20250616
  Transmission Date: 20250717
  Serious: Yes (Other)
  Sender: FDA-CTU
  Company Number: None

PATIENT
  Age: 33 Year
  Sex: Female

DRUGS (9)
  1. XIFAXAN [Suspect]
     Active Substance: RIFAXIMIN
     Indication: Hepatic encephalopathy
     Dosage: FREQUENCY : DAILY;?
     Route: 048
     Dates: start: 20230627
  2. PROBIOTICS NOS [Concomitant]
     Active Substance: PROBIOTICS NOS
  3. ONDANSETRON [Concomitant]
     Active Substance: ONDANSETRON
  4. ADDERALL [Concomitant]
     Active Substance: AMPHETAMINE ASPARTATE\AMPHETAMINE SULFATE\DEXTROAMPHETAMINE SACCHARATE\DEXTROAMPHETAMINE SULFATE
  5. TRAMADOL [Concomitant]
     Active Substance: TRAMADOL
  6. LACTULOSE [Concomitant]
     Active Substance: LACTULOSE
  7. FLUCONAZOLE [Concomitant]
     Active Substance: FLUCONAZOLE
  8. CEPHALEXIN [Concomitant]
     Active Substance: CEPHALEXIN
  9. DEMANNOSE [Concomitant]
     Active Substance: DEMANNOSE

REACTIONS (2)
  - Urinary tract infection [None]
  - Fungal infection [None]

NARRATIVE: CASE EVENT DATE: 20250616
